FAERS Safety Report 6187372-5 (Version None)
Quarter: 2009Q2

REPORT INFORMATION
  Report Type: 
  Country: None (occurrence: None)
  Receive Date: 20090512
  Receipt Date: 20090505
  Transmission Date: 20091009
  Serious: Yes (Other)
  Sender: FDA-Public Use
  Company Number: A0783565A

PATIENT
  Sex: Female

DRUGS (2)
  1. EPIVIR [Suspect]
     Indication: HIV INFECTION
     Dosage: 600MG PER DAY
     Route: 048
     Dates: end: 20081211
  2. KALETRA [Suspect]
     Indication: HIV INFECTION
     Route: 048
     Dates: end: 20081211

REACTIONS (1)
  - ABORTION SPONTANEOUS [None]
